FAERS Safety Report 16086122 (Version 1)
Quarter: 2019Q1

REPORT INFORMATION
  Report Type: Spontaneous
  Country: FI (occurrence: FI)
  Receive Date: 20190318
  Receipt Date: 20190318
  Transmission Date: 20190418
  Serious: No
  Sender: FDA-Public Use
  Company Number: FI-ALLERGAN-1911652US

PATIENT
  Age: 41 Year
  Sex: Female

DRUGS (2)
  1. ASENAPINE MALEATE - BP [Suspect]
     Active Substance: ASENAPINE MALEATE
     Indication: PRODUCT USED FOR UNKNOWN INDICATION
     Dosage: 10 MG, UNK
     Route: 048
  2. ASENAPINE MALEATE - BP [Suspect]
     Active Substance: ASENAPINE MALEATE
     Dosage: 20 MG, QPM
     Route: 048

REACTIONS (4)
  - Respiration abnormal [Unknown]
  - Malaise [Unknown]
  - Dyspnoea [Unknown]
  - Asthenia [Unknown]
